FAERS Safety Report 6932818-5 (Version None)
Quarter: 2010Q3

REPORT INFORMATION
  Report Type: 
  Country: None (occurrence: None)
  Receive Date: 20100819
  Receipt Date: 20100809
  Transmission Date: 20110219
  Serious: Yes (Hospitalization)
  Sender: FDA-Public Use
  Company Number: JP-ROCHE-707529

PATIENT
  Sex: Male
  Weight: 64 kg

DRUGS (13)
  1. KYTRIL [Suspect]
     Indication: PROPHYLAXIS OF NAUSEA AND VOMITING
     Route: 042
     Dates: start: 20100212, end: 20100303
  2. AVASTIN [Suspect]
     Indication: COLON CANCER METASTATIC
     Route: 041
     Dates: start: 20090609, end: 20100106
  3. XELODA [Suspect]
     Indication: COLON CANCER METASTATIC
     Dosage: DRUG:XELODA 300.2 WEEKS ADMINISTRATION FOLLOWED BY 1 WEEK REST.
     Route: 048
     Dates: start: 20100210, end: 20100317
  4. ELPLAT [Suspect]
     Indication: COLON CANCER METASTATIC
     Route: 041
     Dates: start: 20100210, end: 20100303
  5. UFT [Concomitant]
     Dosage: NOTE:200 MG, 200MG, 100 MG.
     Route: 048
     Dates: start: 20090609, end: 20100127
  6. LEUCOVORIN CALCIUM [Concomitant]
     Route: 048
     Dates: start: 20090609, end: 20100127
  7. DEXART [Concomitant]
     Route: 042
     Dates: start: 20100210, end: 20100303
  8. SHITEI [Concomitant]
     Dosage: DOSE FORM : PERORAL AGENT
     Route: 048
     Dates: start: 20100212, end: 20100303
  9. HERBALAX [Concomitant]
     Dosage: REPORTED:HERBAL MEDICINE FORM:GRANULATED POWDER.
     Route: 048
     Dates: start: 20100212, end: 20100303
  10. PURSENNID [Concomitant]
     Route: 048
     Dates: start: 20100212, end: 20100303
  11. LAXOBERON [Concomitant]
     Dosage: FORM:PER ORAL LIQUID PREPARATION.
     Route: 048
     Dates: start: 20100212, end: 20100303
  12. ATARAX [Concomitant]
     Route: 040
     Dates: start: 20100212, end: 20100212
  13. GABALON [Concomitant]
     Route: 048
     Dates: start: 20100217, end: 20100330

REACTIONS (3)
  - CONSTIPATION [None]
  - HICCUPS [None]
  - LIVER ABSCESS [None]
